FAERS Safety Report 9753816 (Version 2)
Quarter: 2015Q3

REPORT INFORMATION
  Report Type: Spontaneous
  Country: US (occurrence: US)
  Receive Date: 20131213
  Receipt Date: 20150805
  Transmission Date: 20151125
  Serious: No
  Sender: FDA-Public Use
  Company Number: US-GILEAD-2010-0027578

PATIENT
  Age: 69 Year
  Sex: Female
  Weight: 58.97 kg

DRUGS (14)
  1. SINGULAIR [Concomitant]
     Active Substance: MONTELUKAST SODIUM
  2. NYSTATIN. [Concomitant]
     Active Substance: NYSTATIN
  3. LETAIRIS [Suspect]
     Active Substance: AMBRISENTAN
     Indication: PULMONARY ARTERIAL HYPERTENSION
     Route: 048
     Dates: start: 20091201
  4. NORVASC [Concomitant]
     Active Substance: AMLODIPINE BESYLATE
  5. PREDNISONE. [Concomitant]
     Active Substance: PREDNISONE
  6. NEPHRO-VITE [Concomitant]
  7. URSODIOL. [Concomitant]
     Active Substance: URSODIOL
  8. PREVACID [Concomitant]
     Active Substance: LANSOPRAZOLE
  9. LASIX [Concomitant]
     Active Substance: FUROSEMIDE
  10. CALCIUM + D [Concomitant]
     Active Substance: CALCIUM\VITAMIN D
  11. REVATIO [Concomitant]
     Active Substance: SILDENAFIL CITRATE
  12. HYDRALAZINE [Concomitant]
     Active Substance: HYDRALAZINE HYDROCHLORIDE
  13. COUMADIN [Concomitant]
     Active Substance: WARFARIN SODIUM
  14. EVOXAC [Concomitant]
     Active Substance: CEVIMELINE HYDROCHLORIDE

REACTIONS (1)
  - Oedema peripheral [Unknown]
